FAERS Safety Report 16917763 (Version 1)
Quarter: 2019Q4

REPORT INFORMATION
  Report Type: Report from Study
  Country: CN (occurrence: CN)
  Receive Date: 20191015
  Receipt Date: 20191015
  Transmission Date: 20200122
  Serious: Yes (Other)
  Sender: FDA-Public Use
  Company Number: CN-ROCHE-2440502

PATIENT

DRUGS (8)
  1. ICOTINIB [Suspect]
     Active Substance: ICOTINIB
     Indication: NON-SMALL CELL LUNG CANCER
     Route: 065
  2. BEVACIZUMAB. [Suspect]
     Active Substance: BEVACIZUMAB
     Indication: NON-SMALL CELL LUNG CANCER
     Dosage: ON DAY 1 OF A 21-DAY CYCLE
     Route: 042
  3. GEFITINIB. [Suspect]
     Active Substance: GEFITINIB
     Indication: NON-SMALL CELL LUNG CANCER
     Route: 065
  4. ERLOTINIB [Suspect]
     Active Substance: ERLOTINIB
     Indication: NON-SMALL CELL LUNG CANCER
     Route: 065
  5. BEVACIZUMAB. [Suspect]
     Active Substance: BEVACIZUMAB
     Indication: METASTASES TO CENTRAL NERVOUS SYSTEM
  6. GEFITINIB. [Suspect]
     Active Substance: GEFITINIB
     Indication: METASTASES TO CENTRAL NERVOUS SYSTEM
  7. ICOTINIB [Suspect]
     Active Substance: ICOTINIB
     Indication: METASTASES TO CENTRAL NERVOUS SYSTEM
  8. ERLOTINIB [Suspect]
     Active Substance: ERLOTINIB
     Indication: METASTASES TO CENTRAL NERVOUS SYSTEM

REACTIONS (11)
  - Haemorrhage [Unknown]
  - Constipation [Unknown]
  - Diarrhoea [Unknown]
  - Hypertension [Unknown]
  - Rash [Unknown]
  - Vomiting [Unknown]
  - Hepatic function abnormal [Unknown]
  - Proteinuria [Unknown]
  - Dry skin [Unknown]
  - Decreased appetite [Unknown]
  - Paronychia [Unknown]
